FAERS Safety Report 8163956-X (Version None)
Quarter: 2012Q1

REPORT INFORMATION
  Report Type: 
  Country: None (occurrence: None)
  Receive Date: 20120221
  Receipt Date: 20120209
  Transmission Date: 20120608
  Serious: Yes (Other)
  Sender: FDA-Public Use
  Company Number: AUR-APL-2012-00882

PATIENT
  Age: 27 Year
  Sex: Male

DRUGS (3)
  1. CLOZARIL [Suspect]
     Indication: SCHIZOPHRENIA
     Dosage: (200 MG),ORAL, ORAL
     Route: 048
     Dates: start: 20051122
  2. CLOZARIL [Suspect]
     Indication: SCHIZOPHRENIA
     Dosage: (200 MG),ORAL, ORAL
     Route: 048
     Dates: start: 20070101
  3. RISPERIDONE [Suspect]
     Indication: SCHIZOPHRENIA
     Dosage: ORAL, (8 MG),ORAL
     Dates: start: 20070101

REACTIONS (3)
  - OBSESSIVE-COMPULSIVE DISORDER [None]
  - DRUG LEVEL DECREASED [None]
  - ANXIETY [None]
